FAERS Safety Report 20875140 (Version 1)
Quarter: 2022Q2

REPORT INFORMATION
  Report Type: Spontaneous
  Country: US (occurrence: US)
  Receive Date: 20220526
  Receipt Date: 20220526
  Transmission Date: 20220721
  Serious: Yes (Hospitalization)
  Sender: FDA-Public Use
  Company Number: US-ALEMBIC PHARMACUETICALS LIMITED-2022SCAL000238

PATIENT

DRUGS (4)
  1. ARIPIPRAZOLE [Suspect]
     Active Substance: ARIPIPRAZOLE
     Indication: Schizophrenia
     Dosage: 5 MG, OD
     Route: 048
  2. ARIPIPRAZOLE [Suspect]
     Active Substance: ARIPIPRAZOLE
     Dosage: 7.5 MG, OD
     Route: 048
  3. ARIPIPRAZOLE [Suspect]
     Active Substance: ARIPIPRAZOLE
     Dosage: INCREASED TO 10 MG AND THEN 15 MG FOR 3 DAYS
     Route: 048
  4. ARIPIPRAZOLE [Concomitant]
     Active Substance: ARIPIPRAZOLE
     Indication: Schizophrenia
     Dosage: ADMINISTERED 4DAYS PRIOR TO DISCHARGE
     Route: 030

REACTIONS (6)
  - Psychotic disorder [Recovering/Resolving]
  - Catatonia [Recovering/Resolving]
  - Echolalia [Recovering/Resolving]
  - Staring [Recovering/Resolving]
  - Speech disorder [Recovering/Resolving]
  - Waxy flexibility [Recovering/Resolving]
